FAERS Safety Report 4516171-2 (Version None)
Quarter: 2004Q4

REPORT INFORMATION
  Report Type: 
  Country: None (occurrence: None)
  Receive Date: 20041201
  Receipt Date: 20041201
  Transmission Date: 20050328
  Serious: Yes (Other)
  Sender: FDA-Public Use
  Company Number: None

PATIENT
  Age: 29 Year
  Sex: Female

DRUGS (2)
  1. TISSUE FOR ACL TISSUE BANK INTERNATIONAL [Suspect]
     Indication: LIGAMENT DISORDER
  2. TISSUE FOR ACL TISSUE BANK INTERNATIONAL [Suspect]
     Indication: SURGERY

REACTIONS (1)
  - POST PROCEDURAL COMPLICATION [None]
